FAERS Safety Report 5270845-7 (Version None)
Quarter: 2007Q1

REPORT INFORMATION
  Report Type: 
  Country: None (occurrence: None)
  Receive Date: 20070321
  Receipt Date: 20070309
  Transmission Date: 20070707
  Serious: Yes (Life-Threatening, Hospitalization)
  Sender: FDA-Public Use
  Company Number: HQWYE356212MAR07

PATIENT
  Sex: Male
  Weight: 108.96 kg

DRUGS (6)
  1. EFFEXOR XR [Interacting]
     Indication: BIPOLAR I DISORDER
     Route: 048
     Dates: start: 20051001
  2. SEROQUEL [Suspect]
     Dosage: UNKNOWN
  3. L-CARNITINE [Interacting]
     Indication: ASTHENIA
     Dosage: UNKNOWN
     Route: 048
     Dates: start: 20070302, end: 20070302
  4. LAMICTAL [Suspect]
     Dosage: UNKNOWN
  5. GINSENG [Interacting]
     Indication: ASTHENIA
     Dosage: UNKNOWN
     Route: 048
     Dates: start: 20070302, end: 20070302
  6. CAFFEINE [Interacting]
     Indication: ASTHENIA
     Dosage: UNKNOWN
     Route: 048
     Dates: start: 20070302, end: 20070302

REACTIONS (8)
  - BLOOD PRESSURE DECREASED [None]
  - DIZZINESS [None]
  - DRUG INTERACTION [None]
  - HYPERHIDROSIS [None]
  - NAUSEA [None]
  - PARAESTHESIA [None]
  - PULSE ABSENT [None]
  - SYNCOPE VASOVAGAL [None]
